FAERS Safety Report 5577553-3 (Version None)
Quarter: 2007Q4

REPORT INFORMATION
  Report Type: 
  Country: None (occurrence: None)
  Receive Date: 20071228
  Receipt Date: 20071214
  Transmission Date: 20080405
  Serious: Yes (Other)
  Sender: FDA-Public Use
  Company Number: GB-ELI_LILLY_AND_COMPANY-GB200712003211

PATIENT
  Age: 40 Year
  Sex: Male

DRUGS (8)
  1. BYETTA [Suspect]
     Indication: TYPE 2 DIABETES MELLITUS
     Dosage: 5 UG, UNKNOWN
     Route: 065
     Dates: start: 20070813, end: 20070901
  2. BYETTA [Suspect]
     Dosage: 10 UG, UNKNOWN
     Route: 065
     Dates: start: 20070901, end: 20071213
  3. PLAVIX [Concomitant]
     Dosage: UNK, UNKNOWN
  4. CYCLOSERINE [Concomitant]
     Dosage: UNK, UNKNOWN
  5. SIMVASTATIN [Concomitant]
     Dosage: UNK, UNKNOWN
  6. INDERAL LA [Concomitant]
     Dosage: UNK, UNKNOWN
  7. RAMIPRIL [Concomitant]
     Dosage: UNK, UNKNOWN
  8. LUSTRAL [Concomitant]
     Dosage: UNK, UNKNOWN

REACTIONS (1)
  - BLOOD GLUCOSE DECREASED [None]
